FAERS Safety Report 8325405-8 (Version None)
Quarter: 2012Q2

REPORT INFORMATION
  Report Type: 
  Country: None (occurrence: None)
  Receive Date: 20120501
  Receipt Date: 20120418
  Transmission Date: 20120825
  Serious: Yes (Hospitalization, Other)
  Sender: FDA-Public Use
  Company Number: GB-VERTEX PHARMACEUTICALS INC.-AE-2012-004670

PATIENT
  Sex: Female
  Weight: 48.8 kg

DRUGS (8)
  1. AZITHROMYCIN [Concomitant]
  2. OMEPRAZOLE [Concomitant]
  3. MINOCYCLINE HCL [Concomitant]
  4. PREDNISOLONE [Concomitant]
  5. PANCREASE [Concomitant]
  6. CALCITONIN SALMON [Concomitant]
  7. IVACAFTOR [Suspect]
     Indication: CYSTIC FIBROSIS
     Dates: start: 20120203
  8. APIDRA INSULIN [Concomitant]

REACTIONS (1)
  - PNEUMOTHORAX [None]
